FAERS Safety Report 5291977-3 (Version None)
Quarter: 2007Q2

REPORT INFORMATION
  Report Type: 
  Country: None (occurrence: None)
  Receive Date: 20070403
  Receipt Date: 20070319
  Transmission Date: 20071010
  Serious: Yes (Hospitalization, Other)
  Sender: FDA-Public Use
  Company Number: 2007PV027649

PATIENT
  Age: 63 Year
  Sex: Female
  Weight: 108.4097 kg

DRUGS (13)
  1. BYETTA [Suspect]
     Indication: DIABETES MELLITUS NON-INSULIN-DEPENDENT
     Dosage: SEE IMAGE
     Route: 058
     Dates: start: 20060523, end: 20060612
  2. BYETTA [Suspect]
     Indication: DIABETES MELLITUS NON-INSULIN-DEPENDENT
     Dosage: SEE IMAGE
     Route: 058
     Dates: start: 20060613
  3. GLUCOPHAGE [Concomitant]
  4. PACERONE [Concomitant]
  5. NEXIUM [Concomitant]
  6. AMITRIPTYLINE HCL [Concomitant]
  7. METFORMIN HCL [Concomitant]
  8. LISINOPRIL [Concomitant]
  9. NORVASC [Concomitant]
  10. FLUOXETINE [Concomitant]
  11. LEVOTHYROXINE SODIUM [Concomitant]
  12. CARBAMAZEPINE [Concomitant]
  13. ZOCOR [Concomitant]

REACTIONS (13)
  - ATRIAL FIBRILLATION [None]
  - CARDIAC VALVE DISEASE [None]
  - DILATATION ATRIAL [None]
  - ECCHYMOSIS [None]
  - HAEMOGLOBIN DECREASED [None]
  - KNEE ARTHROPLASTY [None]
  - LOCAL SWELLING [None]
  - NAUSEA [None]
  - POST PROCEDURAL COMPLICATION [None]
  - PULMONARY HYPERTENSION [None]
  - TACHYCARDIA [None]
  - VASCULAR PSEUDOANEURYSM [None]
  - WEIGHT DECREASED [None]
